FAERS Safety Report 10902693 (Version 3)
Quarter: 2015Q2

REPORT INFORMATION
  Report Type: Spontaneous
  Country: KR (occurrence: KR)
  Receive Date: 20150310
  Receipt Date: 20150406
  Transmission Date: 20150821
  Serious: Yes (Other)
  Sender: FDA-Public Use
  Company Number: KR-009507513-1503KOR004095

PATIENT
  Age: 46 Year
  Sex: Male
  Weight: 90 kg

DRUGS (19)
  1. ROCURONIUM BROMIDE. [Suspect]
     Active Substance: ROCURONIUM BROMIDE
     Indication: MUSCLE RELAXANT THERAPY
     Dosage: 50 MG, ONCE
     Route: 042
     Dates: start: 20150223, end: 20150223
  2. NASEA [Concomitant]
     Active Substance: RAMOSETRON HYDROCHLORIDE
     Indication: PROPHYLAXIS OF NAUSEA AND VOMITING
     Dosage: 0.3 MG, UNK
     Route: 042
     Dates: start: 20150223
  3. AVENTRO [Concomitant]
     Dosage: 1 DF, QID
     Route: 055
     Dates: start: 20150224, end: 20150226
  4. HEXAMEDIN [Concomitant]
     Indication: PROPHYLAXIS
     Dosage: 1 DF, UNK
     Route: 061
     Dates: start: 20150221, end: 20150222
  5. BRIDION [Suspect]
     Active Substance: SUGAMMADEX
     Indication: NEUROMUSCULAR BLOCKADE REVERSAL
     Dosage: 2 MG/KG, ONCE (180 MG)
     Route: 042
     Dates: start: 20150223, end: 20150223
  6. HALCION [Concomitant]
     Active Substance: TRIAZOLAM
     Indication: PROPHYLAXIS
     Dosage: 0.25 MG, UNK
     Route: 048
     Dates: start: 20150223, end: 20150223
  7. AVENTRO [Concomitant]
     Dosage: 1 DF, BID
     Route: 055
     Dates: start: 20150223, end: 20150223
  8. ROCURONIUM BROMIDE. [Suspect]
     Active Substance: ROCURONIUM BROMIDE
     Dosage: 250 MG, ONCE
     Route: 042
     Dates: start: 20150223, end: 20150223
  9. ACUPAN [Concomitant]
     Active Substance: NEFOPAM HYDROCHLORIDE
     Dosage: 200 MG, UNK
     Route: 041
     Dates: start: 20150223, end: 20150224
  10. AVENTRO [Concomitant]
     Indication: PROPHYLAXIS
     Dosage: 1 DF, BID
     Route: 055
     Dates: start: 20150221, end: 20150221
  11. DULCOLAX [Concomitant]
     Active Substance: BISACODYL OR DOCUSATE SODIUM
     Indication: IRRIGATION THERAPY
     Dosage: 20 MG, UNK
     Route: 061
     Dates: start: 20150222, end: 20150222
  12. NASEA [Concomitant]
     Active Substance: RAMOSETRON HYDROCHLORIDE
     Dosage: 0.6 MG, UNK
     Route: 041
     Dates: start: 20150223, end: 20150224
  13. FENTANYL CITRATE. [Concomitant]
     Active Substance: FENTANYL CITRATE
     Indication: PAIN PROPHYLAXIS
     Dosage: 100 MICROGRAM, UNK
     Route: 008
     Dates: start: 20150223
  14. ACUPAN [Concomitant]
     Active Substance: NEFOPAM HYDROCHLORIDE
     Indication: PAIN PROPHYLAXIS
     Dosage: 20 MG, UNK
     Route: 008
     Dates: start: 20150223
  15. XEROVA [Concomitant]
     Indication: PROPHYLAXIS
     Dosage: UNK
     Route: 055
     Dates: start: 20150223, end: 20150223
  16. FENTANYL CITRATE. [Concomitant]
     Active Substance: FENTANYL CITRATE
     Dosage: 1500 MICROGRAM, UNK
     Route: 041
     Dates: start: 20150223, end: 20150224
  17. AVENTRO [Concomitant]
     Dosage: 1 DF, QID
     Route: 055
     Dates: start: 20150222, end: 20150222
  18. VENTOLIN [Concomitant]
     Active Substance: ALBUTEROL SULFATE
     Indication: PROPHYLAXIS
     Dosage: 1 DF, UNK
     Route: 055
     Dates: start: 20150221, end: 20150226
  19. ZENOCEF (CEFAZEDONE SODIUM) [Concomitant]
     Indication: INFECTION PROPHYLAXIS
     Dosage: 1 G, UNK
     Route: 042
     Dates: start: 20150223, end: 20150223

REACTIONS (8)
  - Paraesthesia [Recovered/Resolved]
  - Urine output decreased [Recovered/Resolved]
  - Abdominal pain [Recovered/Resolved]
  - Hypertensive crisis [Recovered/Resolved]
  - Cold sweat [Recovered/Resolved]
  - Nausea [Recovered/Resolved]
  - Diarrhoea [Recovered/Resolved]
  - Pyrexia [Recovered/Resolved]

NARRATIVE: CASE EVENT DATE: 20150223
